FAERS Safety Report 18427991 (Version 1)
Quarter: 2020Q4

REPORT INFORMATION
  Report Type: Spontaneous
  Country: US (occurrence: US)
  Receive Date: 20201026
  Receipt Date: 20201026
  Transmission Date: 20210114
  Serious: No
  Sender: FDA-Public Use
  Company Number: US-ABBVIE-20K-163-3493570-00

PATIENT
  Sex: Female

DRUGS (2)
  1. LUPRON [Suspect]
     Active Substance: LEUPROLIDE ACETATE
     Indication: OVULATION INDUCTION
     Route: 065
     Dates: start: 2008, end: 2008
  2. LUPRON [Suspect]
     Active Substance: LEUPROLIDE ACETATE
     Indication: ASSISTED FERTILISATION

REACTIONS (2)
  - Maternal exposure during pregnancy [Unknown]
  - Off label use [Unknown]
